FAERS Safety Report 4828587-5 (Version None)
Quarter: 2005Q4

REPORT INFORMATION
  Report Type: 
  Country: None (occurrence: None)
  Receive Date: 20051115
  Receipt Date: 20051107
  Transmission Date: 20060501
  Serious: Yes (Life-Threatening, Hospitalization, Other)
  Sender: FDA-Public Use
  Company Number: US-JNJFOC-20051004165

PATIENT
  Age: 49 Year
  Sex: Female
  Weight: 77.11 kg

DRUGS (13)
  1. DURAGESIC-100 [Suspect]
     Route: 062
  2. DURAGESIC-100 [Suspect]
     Route: 062
  3. PLETAL [Concomitant]
  4. VICODIN ES [Concomitant]
  5. VICODIN ES [Concomitant]
     Indication: PAIN
  6. PERCOCET [Concomitant]
  7. PERCOCET [Concomitant]
     Indication: PAIN
  8. ASACOL [Concomitant]
     Indication: CROHN'S DISEASE
  9. STARLIX [Concomitant]
  10. PREDNISONE [Concomitant]
     Indication: CROHN'S DISEASE
  11. ALLEGRA [Concomitant]
  12. PROZAC [Concomitant]
     Indication: DEPRESSION
  13. NEURONTIN [Concomitant]
     Indication: NEUROPATHY

REACTIONS (3)
  - OVERDOSE [None]
  - POOR QUALITY DRUG ADMINISTERED [None]
  - RESPIRATORY ARREST [None]
